FAERS Safety Report 6231836-2 (Version None)
Quarter: 2009Q2

REPORT INFORMATION
  Report Type: 
  Country: None (occurrence: None)
  Receive Date: 20090612
  Receipt Date: 20090612
  Transmission Date: 20091009
  Serious: Yes (Life-Threatening, Hospitalization)
  Sender: FDA-Public Use
  Company Number: None

PATIENT
  Age: 34 Year
  Sex: Female
  Weight: 87.9978 kg

DRUGS (1)
  1. NEURONTIN [Suspect]
     Indication: DIABETIC NEUROPATHY
     Dosage: 500 MG  5 TIMES A DAY PO
     Route: 048
     Dates: start: 20080301, end: 20090430

REACTIONS (2)
  - ANGER [None]
  - SUICIDE ATTEMPT [None]
